FAERS Safety Report 22853437 (Version 2)
Quarter: 2023Q4

REPORT INFORMATION
  Report Type: Spontaneous
  Country: FR (occurrence: FR)
  Receive Date: 20230823
  Receipt Date: 20231102
  Transmission Date: 20240110
  Serious: Yes (Other)
  Sender: FDA-Public Use
  Company Number: None

PATIENT
  Age: 62 Year
  Sex: Male
  Weight: 63 kg

DRUGS (2)
  1. LUMAKRAS [Suspect]
     Active Substance: SOTORASIB
     Indication: Bronchial carcinoma
     Dosage: 480 MILLIGRAM, QD
     Route: 048
     Dates: start: 20230311
  2. LUMAKRAS [Suspect]
     Active Substance: SOTORASIB
     Dosage: DOSE DECREASED
     Route: 048
     Dates: start: 2023

REACTIONS (1)
  - Gastrointestinal disorder [Recovered/Resolved]

NARRATIVE: CASE EVENT DATE: 20230402
